FAERS Safety Report 6772837-5 (Version None)
Quarter: 2010Q2

REPORT INFORMATION
  Report Type: 
  Country: None (occurrence: None)
  Receive Date: 20100616
  Receipt Date: 20100614
  Transmission Date: 20101027
  Serious: Yes (Death)
  Sender: FDA-Public Use
  Company Number: US-BRISTOL-MYERS SQUIBB COMPANY-15147911

PATIENT
  Age: 85 Year
  Sex: Female

DRUGS (2)
  1. ORENCIA [Suspect]
     Dosage: LAST DOSE ON 13MAR2009
     Dates: start: 20071129, end: 20090313
  2. REMICADE [Suspect]
     Dosage: NO OF INFUSIONS:6

REACTIONS (1)
  - DEATH [None]
